FAERS Safety Report 26169769 (Version 1)
Quarter: 2025Q4

REPORT INFORMATION
  Report Type: Spontaneous
  Country: GB (occurrence: GB)
  Receive Date: 20251217
  Receipt Date: 20251217
  Transmission Date: 20260118
  Serious: Yes (Other)
  Sender: MYLAN
  Company Number: None

PATIENT
  Age: 68 Year
  Sex: Female
  Weight: 76 kg

DRUGS (16)
  1. ATORVASTATIN [Suspect]
     Active Substance: ATORVASTATIN
     Indication: Blood cholesterol abnormal
     Dosage: 20 MILLIGRAM, PM (TAKE ONE DAILY AT NIGHT FOR CHOELSTEROL)
     Dates: start: 20250625, end: 20251020
  2. ATORVASTATIN [Suspect]
     Active Substance: ATORVASTATIN
     Dosage: 20 MILLIGRAM, PM (TAKE ONE DAILY AT NIGHT FOR CHOELSTEROL)
     Route: 065
     Dates: start: 20250625, end: 20251020
  3. ATORVASTATIN [Suspect]
     Active Substance: ATORVASTATIN
     Dosage: 20 MILLIGRAM, PM (TAKE ONE DAILY AT NIGHT FOR CHOELSTEROL)
     Route: 065
     Dates: start: 20250625, end: 20251020
  4. ATORVASTATIN [Suspect]
     Active Substance: ATORVASTATIN
     Dosage: 20 MILLIGRAM, PM (TAKE ONE DAILY AT NIGHT FOR CHOELSTEROL)
     Dates: start: 20250625, end: 20251020
  5. LOSARTAN [Concomitant]
     Active Substance: LOSARTAN
     Dosage: 1 DOSAGE FORM, QD
     Dates: start: 20250904
  6. LOSARTAN [Concomitant]
     Active Substance: LOSARTAN
     Dosage: 1 DOSAGE FORM, QD
     Route: 065
     Dates: start: 20250904
  7. LOSARTAN [Concomitant]
     Active Substance: LOSARTAN
     Dosage: 1 DOSAGE FORM, QD
     Route: 065
     Dates: start: 20250904
  8. LOSARTAN [Concomitant]
     Active Substance: LOSARTAN
     Dosage: 1 DOSAGE FORM, QD
     Dates: start: 20250904
  9. PRAVASTATIN [Concomitant]
     Active Substance: PRAVASTATIN
     Dosage: 1 DOSAGE FORM, PM (TAKE ONE AT NIGHT)
     Dates: start: 20251020, end: 20251020
  10. PRAVASTATIN [Concomitant]
     Active Substance: PRAVASTATIN
     Dosage: 1 DOSAGE FORM, PM (TAKE ONE AT NIGHT)
     Route: 065
     Dates: start: 20251020, end: 20251020
  11. PRAVASTATIN [Concomitant]
     Active Substance: PRAVASTATIN
     Dosage: 1 DOSAGE FORM, PM (TAKE ONE AT NIGHT)
     Route: 065
     Dates: start: 20251020, end: 20251020
  12. PRAVASTATIN [Concomitant]
     Active Substance: PRAVASTATIN
     Dosage: 1 DOSAGE FORM, PM (TAKE ONE AT NIGHT)
     Dates: start: 20251020, end: 20251020
  13. ROSUVASTATIN [Concomitant]
     Active Substance: ROSUVASTATIN
     Dosage: 1 DOSAGE FORM, PM (1 AT NIGHT)
     Dates: start: 20251020
  14. ROSUVASTATIN [Concomitant]
     Active Substance: ROSUVASTATIN
     Dosage: 1 DOSAGE FORM, PM (1 AT NIGHT)
     Route: 065
     Dates: start: 20251020
  15. ROSUVASTATIN [Concomitant]
     Active Substance: ROSUVASTATIN
     Dosage: 1 DOSAGE FORM, PM (1 AT NIGHT)
     Route: 065
     Dates: start: 20251020
  16. ROSUVASTATIN [Concomitant]
     Active Substance: ROSUVASTATIN
     Dosage: 1 DOSAGE FORM, PM (1 AT NIGHT)
     Dates: start: 20251020

REACTIONS (3)
  - Alopecia [Recovering/Resolving]
  - Myalgia [Recovered/Resolved]
  - Weight increased [Unknown]

NARRATIVE: CASE EVENT DATE: 20251020
